FAERS Safety Report 12963941 (Version 1)
Quarter: 2016Q4

REPORT INFORMATION
  Report Type: Spontaneous
  Country: JP (occurrence: JP)
  Receive Date: 20161122
  Receipt Date: 20161122
  Transmission Date: 20170207
  Serious: Yes (Hospitalization, Other)
  Sender: FDA-Public Use
  Company Number: JP-TEVA-711671ISR

PATIENT
  Age: 82 Year
  Sex: Female

DRUGS (8)
  1. OMEPRAL [Concomitant]
     Active Substance: OMEPRAZOLE
  2. GASMOTIN [Concomitant]
     Active Substance: MOSAPRIDE CITRATE
  3. BLOPRESS [Concomitant]
     Active Substance: CANDESARTAN CILEXETIL
  4. ACTONEL [Suspect]
     Active Substance: RISEDRONATE SODIUM
     Indication: OSTEOPOROSIS
     Dosage: 1 DOSAGE FORMS DAILY;
     Route: 048
     Dates: start: 20160820
  5. MUCOSTA [Concomitant]
     Active Substance: REBAMIPIDE
  6. CALBLOCK [Concomitant]
     Active Substance: AZELNIDIPINE
  7. CALONAL [Concomitant]
     Active Substance: ACETAMINOPHEN
  8. LASIX [Concomitant]
     Active Substance: FUROSEMIDE

REACTIONS (3)
  - Oesophageal ulcer [Recovered/Resolved]
  - Wrong technique in product usage process [Unknown]
  - Haematemesis [Unknown]

NARRATIVE: CASE EVENT DATE: 20160827
